FAERS Safety Report 6982989-X (Version None)
Quarter: 2010Q3

REPORT INFORMATION
  Report Type: 
  Country: None (occurrence: None)
  Receive Date: 20100914
  Receipt Date: 20100518
  Transmission Date: 20110219
  Serious: No
  Sender: FDA-Public Use
  Company Number: US-PFIZER INC-2010062373

PATIENT
  Sex: Female
  Weight: 77.1 kg

DRUGS (6)
  1. LYRICA [Suspect]
     Indication: FIBROMYALGIA
     Dosage: 150 MG, 2X/DAY
     Route: 048
  2. LYRICA [Suspect]
     Dosage: 150 MG, 1X/DAY
     Route: 048
     Dates: start: 20100201
  3. MIRAPEX [Concomitant]
     Dosage: UNK
  4. PREVACID [Concomitant]
     Dosage: UNK
  5. LISINOPRIL [Concomitant]
     Indication: HYPERTENSION
     Dosage: UNK
  6. DETROL [Concomitant]
     Indication: HYPERTONIC BLADDER
     Dosage: UNK

REACTIONS (5)
  - BLOOD CHOLESTEROL INCREASED [None]
  - BLOOD TRIGLYCERIDES INCREASED [None]
  - DECREASED ACTIVITY [None]
  - MALAISE [None]
  - PAIN [None]
